FAERS Safety Report 12603560 (Version 2)
Quarter: 2017Q3

REPORT INFORMATION
  Report Type: Spontaneous
  Country: US (occurrence: US)
  Receive Date: 20160728
  Receipt Date: 20170921
  Transmission Date: 20171127
  Serious: Yes (Hospitalization, Other)
  Sender: FDA-Public Use
  Company Number: US-ASTRAZENECA-2016SE80515

PATIENT
  Age: 51 Year
  Sex: Female

DRUGS (5)
  1. LEVOFLOXACIN. [Concomitant]
     Active Substance: LEVOFLOXACIN
  2. MEROPENEM. [Suspect]
     Active Substance: MEROPENEM
     Indication: ARTHRITIS BACTERIAL
     Route: 042
  3. VANCOMYCIN [Concomitant]
     Active Substance: VANCOMYCIN
  4. AZITHROMYCIN ANHYDROUS. [Concomitant]
     Active Substance: AZITHROMYCIN ANHYDROUS
  5. MEROPENEM. [Suspect]
     Active Substance: MEROPENEM
     Indication: ARTHRITIS
     Route: 042

REACTIONS (3)
  - Dermatosis [Recovered/Resolved]
  - Subcorneal pustular dermatosis [Recovered/Resolved]
  - Eosinophilic pneumonia [Recovered/Resolved]
